FAERS Safety Report 4503436-3 (Version None)
Quarter: 2004Q4

REPORT INFORMATION
  Report Type: 
  Country: None (occurrence: None)
  Receive Date: 20041112
  Receipt Date: 20041102
  Transmission Date: 20050328
  Serious: Yes (Other)
  Sender: FDA-Public Use
  Company Number: 2004240155GB

PATIENT
  Sex: 0

DRUGS (2)
  1. ZYVOX [Suspect]
     Indication: STAPHYLOCOCCAL INFECTION
  2. TEICOPLANIN            (TEICOPLANIN) [Suspect]
     Indication: SICKLE CELL ANAEMIA

REACTIONS (1)
  - HAEMOLYTIC ANAEMIA [None]
